FAERS Safety Report 6048506-6 (Version None)
Quarter: 2009Q1

REPORT INFORMATION
  Report Type: 
  Country: None (occurrence: None)
  Receive Date: 20090123
  Receipt Date: 20090119
  Transmission Date: 20090719
  Serious: Yes (Hospitalization)
  Sender: FDA-Public Use
  Company Number: B0555115A

PATIENT
  Age: 72 Year
  Sex: Female

DRUGS (13)
  1. CLAMOXYL [Suspect]
     Route: 065
     Dates: start: 20081119, end: 20081128
  2. KARDEGIC [Suspect]
     Route: 065
     Dates: start: 20081127
  3. ZANIDIP [Suspect]
     Route: 065
     Dates: start: 20081127, end: 20081128
  4. INIPOMP [Suspect]
     Route: 065
     Dates: start: 20081127, end: 20081201
  5. RISORDAN [Suspect]
     Route: 065
     Dates: start: 20081127, end: 20081128
  6. LASILIX [Concomitant]
  7. TAREG [Concomitant]
  8. HEMIGOXINE [Concomitant]
  9. TARDYFERON [Concomitant]
  10. SPECIAFOLDINE [Concomitant]
  11. PREVISCAN [Concomitant]
     Dates: start: 20060101
  12. CRESTOR [Concomitant]
  13. FONZYLANE [Concomitant]

REACTIONS (3)
  - DERMATITIS EXFOLIATIVE [None]
  - PURPURA [None]
  - RASH MACULAR [None]
